FAERS Safety Report 11434617 (Version 3)
Quarter: 2015Q3

REPORT INFORMATION
  Report Type: Report from Study
  Country: GB (occurrence: GB)
  Receive Date: 20150831
  Receipt Date: 20150923
  Transmission Date: 20151125
  Serious: Yes (Other)
  Sender: FDA-Public Use
  Company Number: GB-LEO PHARMA-236619

PATIENT
  Age: 76 Year
  Sex: Female

DRUGS (4)
  1. RAMIPRIL. [Concomitant]
     Active Substance: RAMIPRIL
     Indication: MYOCARDIAL INFARCTION
     Dates: start: 20141031
  2. RIVAR OXABAN [Concomitant]
     Indication: MYOCARDIAL INFARCTION
     Dates: start: 20141031
  3. PICATO [Suspect]
     Active Substance: INGENOL MEBUTATE
     Indication: ACTINIC KERATOSIS
     Route: 061
     Dates: start: 20150823, end: 20150825
  4. ASPIRIN. [Concomitant]
     Active Substance: ASPIRIN
     Indication: MYOCARDIAL INFARCTION
     Dates: start: 20141031

REACTIONS (10)
  - Application site scab [Recovered/Resolved]
  - Skin discolouration [Recovering/Resolving]
  - Dyspnoea [Recovered/Resolved]
  - Drug administered at inappropriate site [Unknown]
  - Application site vesicles [Recovered/Resolved]
  - Application site erythema [Recovering/Resolving]
  - Eye swelling [Unknown]
  - Application site dryness [Recovering/Resolving]
  - Application site exfoliation [Not Recovered/Not Resolved]
  - Application site swelling [Recovered/Resolved]

NARRATIVE: CASE EVENT DATE: 20150823
